FAERS Safety Report 6296960-7 (Version None)
Quarter: 2009Q3

REPORT INFORMATION
  Report Type: 
  Country: None (occurrence: None)
  Receive Date: 20090804
  Receipt Date: 20090721
  Transmission Date: 20100115
  Serious: Yes (Hospitalization)
  Sender: FDA-Public Use
  Company Number: JP-ELI_LILLY_AND_COMPANY-JP200906007161

PATIENT
  Sex: Male
  Weight: 95 kg

DRUGS (7)
  1. ZYPREXA [Suspect]
     Indication: DEPRESSION
     Dosage: 7.5 MG, DAILY (1/D)
     Route: 048
     Dates: start: 20080901, end: 20081116
  2. PAXIL [Concomitant]
     Indication: DEPRESSION
     Dosage: 30 MG, DAILY (1/D)
     Route: 048
     Dates: start: 20040301, end: 20081116
  3. LEXOTAN [Concomitant]
     Indication: DEPRESSION
     Dosage: 8 MG, UNK
     Route: 048
     Dates: start: 20040301, end: 20081116
  4. AMOXAN [Concomitant]
     Indication: DEPRESSION
     Dosage: 25 MG, 2/D
     Route: 048
     Dates: start: 20040301, end: 20081116
  5. LIMAS [Concomitant]
     Indication: DEPRESSION
     Dosage: 200 MG, 3/D
     Route: 048
     Dates: start: 20040301, end: 20081116
  6. TETRAMIDE [Concomitant]
     Indication: DEPRESSION
     Dosage: 10 MG, 3/D
     Route: 048
     Dates: start: 20040301, end: 20081116
  7. RITALIN [Concomitant]
     Indication: DEPRESSION
     Dosage: 20 MG, 2/D
     Route: 048
     Dates: start: 20040301, end: 20081116

REACTIONS (2)
  - DIABETIC KETOACIDOSIS [None]
  - OFF LABEL USE [None]
